FAERS Safety Report 24157904 (Version 1)
Quarter: 2024Q3

REPORT INFORMATION
  Report Type: Spontaneous
  Country: ES (occurrence: ES)
  Receive Date: 20240731
  Receipt Date: 20240731
  Transmission Date: 20241016
  Serious: Yes (Death, Other)
  Sender: AMGEN
  Company Number: ES-AMGEN-ESPSP2024146811

PATIENT

DRUGS (1)
  1. CARFILZOMIB [Suspect]
     Active Substance: CARFILZOMIB
     Indication: Plasma cell myeloma
     Dosage: UNK
     Route: 065

REACTIONS (15)
  - Plasma cell myeloma [Fatal]
  - Severe acute respiratory syndrome [Fatal]
  - Coronavirus pneumonia [Fatal]
  - Pneumonia bacterial [Fatal]
  - Immune effector cell-associated HLH-like syndrome [Fatal]
  - Neutropenia [Unknown]
  - Thrombocytopenia [Unknown]
  - Infection [Unknown]
  - Cytokine release syndrome [Unknown]
  - Immune effector cell-associated neurotoxicity syndrome [Unknown]
  - Tumour lysis syndrome [Unknown]
  - Hypogammaglobulinaemia [Unknown]
  - Therapy non-responder [Unknown]
  - Therapy partial responder [Unknown]
  - Upper respiratory tract infection [Unknown]
